FAERS Safety Report 8230739-1 (Version None)
Quarter: 2012Q1

REPORT INFORMATION
  Report Type: 
  Country: None (occurrence: None)
  Receive Date: 20120320
  Receipt Date: 20120309
  Transmission Date: 20120608
  Serious: Yes (Hospitalization)
  Sender: FDA-Public Use
  Company Number: 1228233

PATIENT
  Age: 15 Year
  Sex: Male

DRUGS (7)
  1. (PROTON PUMP INHIBITORS) [Suspect]
     Indication: PRODUCT USED FOR UNKNOWN INDICATION
  2. METHOTREXATE [Suspect]
     Indication: JUVENILE ARTHRITIS
     Dosage: 12.5 MG/WK,
  3. CALCIUM CARBONATE [Concomitant]
  4. FOLIC ACID [Concomitant]
  5. PREDNISONE TAB [Suspect]
     Indication: JUVENILE ARTHRITIS
     Dosage: 45 MG MILLIGRAM(S), 7.5 MG MILLIGRAM(S)
  6. HYDROXYCHLOROQUINE SULFATE [Suspect]
     Indication: JUVENILE ARTHRITIS
     Dosage: 200 MG MILLIGRAM(S)
  7. (VTTAMIN D  /00107901/) [Concomitant]

REACTIONS (2)
  - ILEUS [None]
  - BEZOAR [None]
